FAERS Safety Report 11686893 (Version 3)
Quarter: 2016Q1

REPORT INFORMATION
  Report Type: Report from Study
  Country: IT (occurrence: IT)
  Receive Date: 20151030
  Receipt Date: 20160225
  Transmission Date: 20160525
  Serious: Yes (Life-Threatening, Hospitalization, Other)
  Sender: FDA-Public Use
  Company Number: IT-CELGENE-ITA-2015092041

PATIENT
  Age: 61 Year
  Sex: Male

DRUGS (7)
  1. VEMURAFENIB [Concomitant]
     Active Substance: VEMURAFENIB
     Indication: NODULAR MELANOMA
     Route: 065
     Dates: start: 201409
  2. CYCLOPHOSPHAMIDE. [Suspect]
     Active Substance: CYCLOPHOSPHAMIDE
     Indication: CHRONIC LYMPHOCYTIC LEUKAEMIA
     Route: 065
     Dates: start: 200912
  3. CC-5013 [Suspect]
     Active Substance: LENALIDOMIDE
     Indication: CHRONIC LYMPHOCYTIC LEUKAEMIA
     Dosage: 40 MILLIGRAM/SQ. METER
     Route: 048
     Dates: start: 201011
  4. RITUXIMAB [Suspect]
     Active Substance: RITUXIMAB
     Indication: CHRONIC LYMPHOCYTIC LEUKAEMIA
     Route: 065
     Dates: start: 200912
  5. ALLOPURINOL. [Concomitant]
     Active Substance: ALLOPURINOL
     Indication: PROPHYLAXIS
     Route: 065
  6. CC-5013 [Suspect]
     Active Substance: LENALIDOMIDE
     Route: 048
  7. FLUDARABINE [Suspect]
     Active Substance: FLUDARABINE PHOSPHATE
     Indication: CHRONIC LYMPHOCYTIC LEUKAEMIA
     Route: 065
     Dates: start: 200912

REACTIONS (1)
  - Acute biphenotypic leukaemia [Not Recovered/Not Resolved]

NARRATIVE: CASE EVENT DATE: 20150826
